FAERS Safety Report 15501552 (Version 2)
Quarter: 2018Q4

REPORT INFORMATION
  Report Type: Report from Study
  Country: None (occurrence: DE)
  Receive Date: 20181015
  Receipt Date: 20181124
  Transmission Date: 20190205
  Serious: Yes (Other)
  Sender: FDA-Public Use
  Company Number: DE-ABBVIE-18K-062-2519421-00

PATIENT
  Age: 51 Year
  Sex: Male
  Weight: 54 kg

DRUGS (2)
  1. METHOTREXAT [Concomitant]
     Active Substance: METHOTREXATE
     Indication: PSORIATIC ARTHROPATHY
     Route: 058
     Dates: start: 20120701
  2. HUMIRA [Suspect]
     Active Substance: ADALIMUMAB
     Indication: SPONDYLITIS
     Route: 058
     Dates: start: 20160701, end: 20180629

REACTIONS (2)
  - Systemic lupus erythematosus [Not Recovered/Not Resolved]
  - Double stranded DNA antibody positive [Recovering/Resolving]

NARRATIVE: CASE EVENT DATE: 20180110
